FAERS Safety Report 4449538-1 (Version None)
Quarter: 2004Q3

REPORT INFORMATION
  Report Type: 
  Country: None (occurrence: None)
  Receive Date: 20040914
  Receipt Date: 20040902
  Transmission Date: 20050211
  Serious: Yes (Hospitalization)
  Sender: FDA-Public Use
  Company Number: JP-JNJFOC-20040902762

PATIENT
  Age: 58 Year
  Sex: Female

DRUGS (1)
  1. FENTANYL [Suspect]
     Indication: PAIN
     Route: 062

REACTIONS (7)
  - CONSTIPATION [None]
  - DECUBITUS ULCER [None]
  - DISORIENTATION [None]
  - HERPES ZOSTER [None]
  - JAUNDICE [None]
  - LIVER ABSCESS [None]
  - THERAPY NON-RESPONDER [None]
